FAERS Safety Report 13622128 (Version 12)
Quarter: 2017Q4

REPORT INFORMATION
  Report Type: Report from Study
  Country: US (occurrence: US)
  Receive Date: 20170607
  Receipt Date: 20171117
  Transmission Date: 20180320
  Serious: Yes (Hospitalization, Other)
  Sender: FDA-Public Use
  Company Number: US-GILEAD-2017-0263468

PATIENT
  Age: 45 Year
  Sex: Female
  Weight: 116 kg

DRUGS (17)
  1. LEVOFLOXACIN. [Suspect]
     Active Substance: LEVOFLOXACIN
     Indication: PRODUCT USED FOR UNKNOWN INDICATION
     Dosage: UNK
     Route: 065
  2. AMBRISENTAN [Suspect]
     Active Substance: AMBRISENTAN
     Indication: PRODUCT USED FOR UNKNOWN INDICATION
     Dosage: 5 MG, QD
     Route: 065
  3. ORENITRAM [Suspect]
     Active Substance: TREPROSTINIL
     Dosage: 1.25 MG, TID
     Route: 048
     Dates: end: 2017
  4. ULORIC [Concomitant]
     Active Substance: FEBUXOSTAT
  5. UPTRAVI [Suspect]
     Active Substance: SELEXIPAG
     Indication: PRODUCT USED FOR UNKNOWN INDICATION
     Dosage: UNK
     Route: 065
     Dates: end: 201703
  6. ORENITRAM [Suspect]
     Active Substance: TREPROSTINIL
     Indication: PULMONARY ARTERIAL HYPERTENSION
     Dosage: 0.25 MG, TID
     Route: 048
     Dates: start: 20170421
  7. ADCIRCA [Concomitant]
     Active Substance: TADALAFIL
  8. ALDACTONE [Concomitant]
     Active Substance: SPIRONOLACTONE
  9. AMBRISENTAN [Suspect]
     Active Substance: AMBRISENTAN
     Dosage: 10 MG, QD
     Route: 065
     Dates: start: 20170322
  10. DIGOXIN. [Concomitant]
     Active Substance: DIGOXIN
  11. BENADRYL [Concomitant]
     Active Substance: DIPHENHYDRAMINE HYDROCHLORIDE
  12. FLOVENT [Concomitant]
     Active Substance: FLUTICASONE PROPIONATE
  13. NEURONTIN [Concomitant]
     Active Substance: GABAPENTIN
  14. ORENITRAM [Suspect]
     Active Substance: TREPROSTINIL
     Dosage: 1 MG, TID
     Route: 048
  15. OXYGEN. [Concomitant]
     Active Substance: OXYGEN
  16. KLOR-CON [Concomitant]
     Active Substance: POTASSIUM CHLORIDE
  17. DEMADEX [Concomitant]
     Active Substance: TORSEMIDE

REACTIONS (27)
  - Pneumonia [Unknown]
  - Limb discomfort [Not Recovered/Not Resolved]
  - Hypotension [Unknown]
  - Dizziness postural [Not Recovered/Not Resolved]
  - Pain [Not Recovered/Not Resolved]
  - Feeling abnormal [Unknown]
  - Headache [Not Recovered/Not Resolved]
  - Hypertension [Recovering/Resolving]
  - Cerumen impaction [Not Recovered/Not Resolved]
  - Loss of consciousness [Unknown]
  - Peripheral swelling [Unknown]
  - Diarrhoea [Not Recovered/Not Resolved]
  - Pulmonary hypertension [Not Recovered/Not Resolved]
  - Dyspnoea [Not Recovered/Not Resolved]
  - Vision blurred [Not Recovered/Not Resolved]
  - Nasal congestion [Not Recovered/Not Resolved]
  - Weight increased [Unknown]
  - Epistaxis [Recovered/Resolved]
  - Unevaluable event [Unknown]
  - Pain in extremity [Unknown]
  - Visual impairment [Not Recovered/Not Resolved]
  - Fatigue [Not Recovered/Not Resolved]
  - Erythema [Unknown]
  - Cardiac arrest [Unknown]
  - Condition aggravated [Not Recovered/Not Resolved]
  - Irritability [Not Recovered/Not Resolved]
  - Fluid retention [Unknown]

NARRATIVE: CASE EVENT DATE: 20170506
